FAERS Safety Report 15326344 (Version 2)
Quarter: 2018Q3

REPORT INFORMATION
  Report Type: Spontaneous
  Country: US (occurrence: US)
  Receive Date: 20180828
  Receipt Date: 20180905
  Transmission Date: 20181010
  Serious: No
  Sender: FDA-Public Use
  Company Number: US-SA-2018SA237737

PATIENT
  Age: 59 Year
  Sex: Female

DRUGS (3)
  1. PANTOPRAZOLE [Concomitant]
     Active Substance: PANTOPRAZOLE
     Indication: SCLERODERMA
  2. ARAVA [Suspect]
     Active Substance: LEFLUNOMIDE
     Indication: RHEUMATOID ARTHRITIS
     Dosage: 10 MG, QOD
     Route: 065
     Dates: start: 20180826
  3. ARAVA [Suspect]
     Active Substance: LEFLUNOMIDE
     Indication: SCLERODERMA

REACTIONS (5)
  - Dyspepsia [Recovered/Resolved]
  - Inflammation [Unknown]
  - Hyperhidrosis [Recovered/Resolved]
  - Burning sensation [Recovered/Resolved]
  - Flatulence [Unknown]
